FAERS Safety Report 7687085 (Version 3)
Quarter: 2012Q4

REPORT INFORMATION
  Report Type: 
  Country: DE (occurrence: DE)
  Receive Date: 20101130
  Receipt Date: 20120828
  Transmission Date: 20130627
  Serious: Yes (Hospitalization)
  Sender: FDA-Public Use
  Company Number: DE-ACTELION-A-CH2009-27439

PATIENT
  Age: 8 Year
  Sex: Male
  Weight: 36 kg

DRUGS (5)
  1. ZAVESCA [Suspect]
     Indication: NIEMANN-PICK DISEASE
     Dosage: 100 mg, bid
     Route: 048
     Dates: start: 2007
  2. ZAVESCA [Suspect]
     Dosage: 50 mg, tid
     Route: 048
     Dates: end: 20100909
  3. ZAVESCA [Suspect]
     Dosage: 100 mg, tid
     Route: 048
  4. ERGENYL CHRONO [Concomitant]
  5. PETHIDIN [Concomitant]

REACTIONS (3)
  - Gastrostomy failure [Not Recovered/Not Resolved]
  - Diarrhoea [Not Recovered/Not Resolved]
  - Lactose intolerance [Unknown]
